FAERS Safety Report 21763544 (Version 1)
Quarter: 2022Q4

REPORT INFORMATION
  Report Type: Spontaneous
  Country: GB (occurrence: GB)
  Receive Date: 20221221
  Receipt Date: 20221221
  Transmission Date: 20230112
  Serious: Yes (Death)
  Sender: FDA-Public Use
  Company Number: GB-TEVA-2022-GB-2838273

PATIENT
  Age: 42 Year
  Sex: Female

DRUGS (3)
  1. CODEINE [Suspect]
     Active Substance: CODEINE
     Indication: Product used for unknown indication
     Route: 065
  2. PREGABALIN [Suspect]
     Active Substance: PREGABALIN
     Indication: Product used for unknown indication
     Route: 065
  3. MORPHINE [Suspect]
     Active Substance: MORPHINE
     Indication: Product used for unknown indication
     Route: 065

REACTIONS (2)
  - Toxicity to various agents [Fatal]
  - Drug abuse [Fatal]
